FAERS Safety Report 9353395 (Version 1)
Quarter: 2013Q2

REPORT INFORMATION
  Report Type: Report from Study
  Country: CA (occurrence: CA)
  Receive Date: 20130618
  Receipt Date: 20130618
  Transmission Date: 20140414
  Serious: Yes (Other)
  Sender: FDA-Public Use
  Company Number: CA-BAYER-2013-071648

PATIENT
  Age: 52 Year
  Sex: Male

DRUGS (2)
  1. BETASERON [Suspect]
     Indication: MULTIPLE SCLEROSIS
     Dosage: 0.3 MG, UNK
     Dates: start: 20040109
  2. FLOMAX [MORNIFLUMATE] [Concomitant]

REACTIONS (2)
  - Cellulitis [Recovered/Resolved]
  - Inflammation [Recovered/Resolved]
